FAERS Safety Report 4363410-7 (Version None)
Quarter: 2004Q2

REPORT INFORMATION
  Report Type: 
  Country: None (occurrence: None)
  Receive Date: 20040524
  Receipt Date: 20040206
  Transmission Date: 20050107
  Serious: Yes (Hospitalization)
  Sender: FDA-Public Use
  Company Number: NL-GLAXOSMITHKLINE-B0322385A

PATIENT
  Age: 49 Year
  Sex: Male
  Weight: 72 kg

DRUGS (2)
  1. LANVIS [Suspect]
     Indication: CROHN'S DISEASE
     Dosage: 40MG PER DAY
     Route: 048
     Dates: start: 20021016, end: 20040206
  2. PREDNISONE [Concomitant]
     Indication: CROHN'S DISEASE
     Dosage: 5MG PER DAY
     Route: 048
     Dates: start: 20021112

REACTIONS (5)
  - CHOLECYSTITIS [None]
  - HEPATIC FUNCTION ABNORMAL [None]
  - PAIN [None]
  - PLATELET COUNT DECREASED [None]
  - STOMACH DISCOMFORT [None]
